FAERS Safety Report 7553498-4 (Version None)
Quarter: 2011Q2

REPORT INFORMATION
  Report Type: 
  Country: None (occurrence: None)
  Receive Date: 20110609
  Receipt Date: 20110531
  Transmission Date: 20111010
  Serious: Yes (Disabling)
  Sender: FDA-Public Use
  Company Number: 935706

PATIENT
  Age: 41 Year
  Sex: Female

DRUGS (5)
  1. METHOTREXATE [Suspect]
     Indication: LEUKAEMIC INFILTRATION BRAIN
     Dosage: 15 MG, INTRATHECAL
     Route: 037
  2. DEXAMETHASONE [Suspect]
     Indication: LEUKAEMIC INFILTRATION BRAIN
     Dosage: 5 MG, INTRATHECAL
     Route: 037
  3. SODIUM CHLORIDE [Concomitant]
  4. LIDOCAINE [Concomitant]
  5. CYTARABINE [Suspect]
     Indication: LEUKAEMIC INFILTRATION BRAIN
     Dosage: 50 MG, INTRATHECAL
     Route: 037

REACTIONS (4)
  - PARAPLEGIA [None]
  - DYSPNOEA [None]
  - AREFLEXIA [None]
  - PARALYSIS FLACCID [None]
